FAERS Safety Report 19273825 (Version 1)
Quarter: 2021Q2

REPORT INFORMATION
  Report Type: Spontaneous
  Country: US (occurrence: US)
  Receive Date: 20210519
  Receipt Date: 20210519
  Transmission Date: 20210717
  Serious: Yes (Hospitalization)
  Sender: FDA-Public Use
  Company Number: None

PATIENT
  Age: 35 Year
  Sex: Female
  Weight: 75 kg

DRUGS (1)
  1. TIZANIDINE (TIZANIDINE HCL 4MG TAB) [Suspect]
     Active Substance: TIZANIDINE HYDROCHLORIDE
     Route: 048
     Dates: start: 20210316, end: 20210421

REACTIONS (4)
  - Diarrhoea [None]
  - Hypotension [None]
  - Haemoglobin decreased [None]
  - Dizziness [None]

NARRATIVE: CASE EVENT DATE: 20210421
